FAERS Safety Report 5918147-7 (Version None)
Quarter: 2008Q4

REPORT INFORMATION
  Report Type: 
  Country: None (occurrence: None)
  Receive Date: 20081014
  Receipt Date: 20081013
  Transmission Date: 20090506
  Serious: Yes (Life-Threatening, Hospitalization, Disabling)
  Sender: FDA-Public Use
  Company Number: DE-ASTRAZENECA-2008PK02248

PATIENT
  Age: 34 Year
  Sex: Female
  Weight: 85 kg

DRUGS (4)
  1. TAMOXIFEN CITRATE [Suspect]
     Indication: BREAST CANCER
     Dosage: DAILY DOSE: 20 MG MILLGRAM(S) EVERY DAY
     Route: 048
     Dates: start: 20070724
  2. ZOLADEX [Concomitant]
     Indication: BREAST CANCER
     Dosage: 3.6
     Route: 058
     Dates: start: 20070724
  3. BISOPROLOL [Concomitant]
     Indication: HYPERTENSION
     Dosage: DAILY DOSE: 5 MG MILLGRAM(S) EVERY DAY
     Route: 048
  4. INDAPAMIDE [Concomitant]
     Dosage: DAILY DOSE: 1 DF DOSAGE FORM EVERY DAY
     Route: 048

REACTIONS (2)
  - HYPERTRIGLYCERIDAEMIA [None]
  - OEDEMATOUS PANCREATITIS [None]
